FAERS Safety Report 21562321 (Version 1)
Quarter: 2022Q4

REPORT INFORMATION
  Report Type: Spontaneous
  Country: AU (occurrence: AU)
  Receive Date: 20221107
  Receipt Date: 20221107
  Transmission Date: 20230113
  Serious: Yes (Other)
  Sender: FDA-Public Use
  Company Number: AU-ALLERGAN-2236166US

PATIENT
  Sex: Female

DRUGS (2)
  1. LUMIGAN [Suspect]
     Active Substance: BIMATOPROST
     Indication: Product used for unknown indication
  2. DIAMOX SEQUELS [Concomitant]
     Active Substance: ACETAZOLAMIDE
     Indication: Product used for unknown indication

REACTIONS (8)
  - Blindness transient [Recovered/Resolved]
  - Eye laser surgery [Unknown]
  - Corneal opacity [Unknown]
  - Intraocular pressure decreased [Unknown]
  - Visual impairment [Unknown]
  - Vomiting [Unknown]
  - Photophobia [Unknown]
  - Lacrimation increased [Unknown]
